FAERS Safety Report 26196851 (Version 1)
Quarter: 2025Q4

REPORT INFORMATION
  Report Type: Spontaneous
  Country: JP (occurrence: JP)
  Receive Date: 20251224
  Receipt Date: 20251224
  Transmission Date: 20260117
  Serious: Yes (Other)
  Sender: AMGEN
  Company Number: JP-AMGEN-JPNSP2025183484

PATIENT
  Age: 83 Year
  Sex: Male
  Weight: 55 kg

DRUGS (10)
  1. OTEZLA [Suspect]
     Active Substance: APREMILAST
     Indication: Psoriasis
     Dosage: UNK UNK, QD (10MG-30MG TWO WEEK STARTER PACK)
     Route: 048
     Dates: start: 20250718, end: 20250720
  2. OTEZLA [Suspect]
     Active Substance: APREMILAST
     Dosage: UNK UNK, QD (10MG-30MG TWO WEEK STARTER PACK)
     Route: 048
     Dates: start: 20250721, end: 20250724
  3. OTEZLA [Suspect]
     Active Substance: APREMILAST
     Dosage: UNK UNK, QD (10MG-30MG TWO WEEK STARTER PACK)
     Route: 048
     Dates: start: 20250725, end: 20250803
  4. OLMESARTAN [Concomitant]
     Active Substance: OLMESARTAN
  5. METFORMIN HYDROCHLORIDE [Concomitant]
     Active Substance: METFORMIN HYDROCHLORIDE
  6. LIMAPROST [Concomitant]
     Active Substance: LIMAPROST
  7. ATORVASTATIN [Concomitant]
     Active Substance: ATORVASTATIN
  8. EDOXABAN TOSYLATE [Concomitant]
     Active Substance: EDOXABAN TOSYLATE
  9. FEXOFENADINE HYDROCHLORIDE [Concomitant]
     Active Substance: FEXOFENADINE HYDROCHLORIDE
  10. BETAMETHASONE DIPROPIONATE\CALCIPOTRIENE MONOHYDRATE [Concomitant]
     Active Substance: BETAMETHASONE DIPROPIONATE\CALCIPOTRIENE MONOHYDRATE
     Dosage: UNK UNK, QD
     Dates: start: 20250718

REACTIONS (24)
  - Liver disorder [Unknown]
  - Off label use [Unknown]
  - Rash [Unknown]
  - Blood glucose increased [Unknown]
  - Blood lactate dehydrogenase increased [Unknown]
  - Blood alkaline phosphatase increased [Unknown]
  - Blood creatine phosphokinase decreased [Unknown]
  - Blood albumin decreased [Unknown]
  - Blood urea increased [Unknown]
  - C-reactive protein [Unknown]
  - Blood thyroid stimulating hormone increased [Unknown]
  - Blood insulin decreased [Unknown]
  - N-terminal prohormone brain natriuretic peptide increased [Unknown]
  - Blood immunoglobulin G decreased [Unknown]
  - Blood immunoglobulin A decreased [Unknown]
  - Blood immunoglobulin M decreased [Unknown]
  - Prothrombin level increased [Unknown]
  - Activated partial thromboplastin time prolonged [Unknown]
  - Red blood cell count decreased [Unknown]
  - Mean cell volume increased [Unknown]
  - Alanine aminotransferase increased [Unknown]
  - Eosinophil count increased [Unknown]
  - Blood cholinesterase decreased [Unknown]
  - Aspartate aminotransferase increased [Unknown]

NARRATIVE: CASE EVENT DATE: 20250718
